FAERS Safety Report 9789192 (Version 1)
Quarter: 2013Q4

REPORT INFORMATION
  Report Type: Report from Study
  Country: US (occurrence: US)
  Receive Date: 20131230
  Receipt Date: 20131230
  Transmission Date: 20140711
  Serious: Yes (Death, Other)
  Sender: FDA-Public Use
  Company Number: US-BRISTOL-MYERS SQUIBB COMPANY-19933159

PATIENT
  Age: 55 Year
  Sex: Male
  Weight: 76.64 kg

DRUGS (12)
  1. ERBITUX [Suspect]
     Dates: start: 20131209
  2. NEXIUM [Concomitant]
  3. DITROPAN XL [Concomitant]
  4. SYNTHROID [Concomitant]
     Dosage: ALSO 75MCG EVERY OTHER DAY
  5. LUNESTA [Concomitant]
     Dosage: QHS
  6. TRAZODONE HCL [Concomitant]
     Dosage: QHS
  7. PHENERGAN [Concomitant]
     Indication: NAUSEA
  8. ZOFRAN [Concomitant]
  9. MORPHINE SULFATE [Concomitant]
     Indication: PAIN
     Dosage: 1DF=100MG/5ML 0.6CC
     Dates: start: 20131209
  10. OXYCONTIN [Concomitant]
     Dates: start: 20131209
  11. MINOCYCLINE [Concomitant]
  12. XANAX [Concomitant]

REACTIONS (6)
  - Death [Fatal]
  - Hypotension [Unknown]
  - Chills [Unknown]
  - Cough [Unknown]
  - Wheezing [Unknown]
  - Pain [Unknown]
